FAERS Safety Report 12818590 (Version 5)
Quarter: 2017Q1

REPORT INFORMATION
  Report Type: Spontaneous
  Country: US (occurrence: US)
  Receive Date: 20161006
  Receipt Date: 20170310
  Transmission Date: 20170428
  Serious: Yes (Congenital Anomaly, Other)
  Sender: FDA-Public Use
  Company Number: PHEH2016US025675

PATIENT
  Sex: Male

DRUGS (2)
  1. ZOFRAN [Suspect]
     Active Substance: ONDANSETRON HYDROCHLORIDE
     Indication: FOETAL EXPOSURE DURING PREGNANCY
     Dosage: MOTHER DOSE: UNK, 4 MG (BID)
     Route: 064
  2. ZOFRAN ODT [Suspect]
     Active Substance: ONDANSETRON HYDROCHLORIDE
     Indication: FOETAL EXPOSURE DURING PREGNANCY
     Dosage: MOTHER DOSE: 4 MG (Q8H)
     Route: 064

REACTIONS (28)
  - Left-to-right cardiac shunt [Unknown]
  - Right-to-left cardiac shunt [Unknown]
  - Pneumonia viral [Unknown]
  - Sepsis [Unknown]
  - Bacterial infection [Unknown]
  - Congenital hypothyroidism [Unknown]
  - Adrenogenital syndrome [Unknown]
  - Right ventricular enlargement [Unknown]
  - Bundle branch block right [Unknown]
  - Omphalitis [Unknown]
  - Upper respiratory tract infection [Unknown]
  - Foreign body [Unknown]
  - Ebstein^s anomaly [Unknown]
  - Tachycardia foetal [Unknown]
  - Injury [Unknown]
  - Tricuspid valve incompetence [Unknown]
  - Right atrial enlargement [Unknown]
  - Infantile apnoea [Unknown]
  - Ventricular septal defect [Unknown]
  - Haemoglobinopathy [Unknown]
  - Cardiac murmur [Unknown]
  - Otitis media [Unknown]
  - Heart disease congenital [Unknown]
  - Foetal exposure during pregnancy [Unknown]
  - Cardiomegaly [Unknown]
  - Atrial septal defect [Unknown]
  - Phenylketonuria [Unknown]
  - Body tinea [Unknown]
